FAERS Safety Report 22620827 (Version 1)
Quarter: 2023Q2

REPORT INFORMATION
  Report Type: Spontaneous
  Country: US (occurrence: None)
  Receive Date: 20230620
  Receipt Date: 20230620
  Transmission Date: 20230722
  Serious: No
  Sender: FDA-Public Use
  Company Number: 2023A134232

PATIENT
  Age: 48 Year
  Sex: Female

DRUGS (1)
  1. TEZSPIRE [Suspect]
     Active Substance: TEZEPELUMAB-EKKO
     Indication: Asthma
     Dosage: EVERY FOUR WEEKS
     Route: 058
     Dates: start: 20230401

REACTIONS (1)
  - Eye oedema [Recovering/Resolving]

NARRATIVE: CASE EVENT DATE: 20230501
